FAERS Safety Report 7995661-4 (Version None)
Quarter: 2011Q4

REPORT INFORMATION
  Report Type: 
  Country: None (occurrence: None)
  Receive Date: 20111217
  Receipt Date: 20111217
  Transmission Date: 20120403
  Serious: No
  Sender: FDA-Public Use
  Company Number: None

PATIENT
  Sex: Male

DRUGS (1)
  1. SUBOXONE [Suspect]
     Indication: DRUG DEPENDENCE

REACTIONS (10)
  - PAIN [None]
  - RHINORRHOEA [None]
  - HYPERHIDROSIS [None]
  - ROAD TRAFFIC ACCIDENT [None]
  - HYPERTENSION [None]
  - LACRIMATION INCREASED [None]
  - VOMITING [None]
  - MUSCLE SPASMS [None]
  - WITHDRAWAL SYNDROME [None]
  - DRUG INTOLERANCE [None]
